FAERS Safety Report 9641011 (Version 1)
Quarter: 2013Q4

REPORT INFORMATION
  Report Type: Report from Study
  Country: US (occurrence: US)
  Receive Date: 20131023
  Receipt Date: 20131023
  Transmission Date: 20140711
  Serious: No
  Sender: FDA-Public Use
  Company Number: US-ABBVIE-12P-163-1003178-00

PATIENT
  Age: 32 Year
  Sex: Female
  Weight: 54.48 kg

DRUGS (6)
  1. LUPRON DEPOT [Suspect]
     Indication: ENDOMETRIOSIS
     Route: 030
     Dates: start: 20120821
  2. CALCIUM [Concomitant]
     Indication: PRODUCT USED FOR UNKNOWN INDICATION
     Route: 048
  3. HERBAL SUPPLEMENTS [Concomitant]
     Indication: ANXIETY
  4. HERBAL SUPPLEMENTS [Concomitant]
     Indication: STRESS
  5. DIGESTIVE ENZYMES [Concomitant]
     Indication: GASTROINTESTINAL MOTILITY DISORDER
  6. NORETHINDRONE ACETATE [Concomitant]
     Indication: PRODUCT USED FOR UNKNOWN INDICATION
     Dosage: 5MG DAILY
     Route: 048

REACTIONS (5)
  - Haemorrhage urinary tract [Not Recovered/Not Resolved]
  - Gastrointestinal hypomotility [Unknown]
  - Vaginal haemorrhage [Unknown]
  - Uterine spasm [Recovered/Resolved]
  - Blood urine [Not Recovered/Not Resolved]
